FAERS Safety Report 4909461-2 (Version None)
Quarter: 2006Q1

REPORT INFORMATION
  Report Type: 
  Country: None (occurrence: None)
  Receive Date: 20060213
  Receipt Date: 20050824
  Transmission Date: 20060701
  Serious: Yes (Hospitalization, Disabling)
  Sender: FDA-Public Use
  Company Number: NL-MERCK-0508NLD00022

PATIENT
  Age: 73 Year
  Sex: Male

DRUGS (2)
  1. VIOXX [Suspect]
     Indication: OSTEOARTHRITIS
     Route: 048
     Dates: start: 20001004, end: 20040817
  2. VENLAFAXINE HYDROCHLORIDE [Concomitant]
     Indication: ANXIETY
     Route: 048
     Dates: start: 20030530

REACTIONS (10)
  - CHEST PAIN [None]
  - CHOLELITHIASIS [None]
  - DEHYDRATION [None]
  - DEMENTIA [None]
  - DEPRESSION [None]
  - HEADACHE [None]
  - HEPATIC ENZYME ABNORMAL [None]
  - MALAISE [None]
  - TRANSIENT ISCHAEMIC ATTACK [None]
  - VOMITING [None]
